FAERS Safety Report 4636287-X (Version None)
Quarter: 2005Q2

REPORT INFORMATION
  Report Type: 
  Country: None (occurrence: None)
  Receive Date: 20050415
  Receipt Date: 20040623
  Transmission Date: 20051028
  Serious: No
  Sender: FDA-Public Use
  Company Number: US-BRISTOL-MYERS SQUIBB COMPANY-12623815

PATIENT
  Age: 35 Year
  Sex: Female

DRUGS (8)
  1. PARAPLATIN [Suspect]
     Indication: OVARIAN CANCER
     Dosage: AUC=6 LOT #: 3M60994, EXPIRATION DATE: JUNE-2005
     Route: 042
     Dates: start: 20040621, end: 20040621
  2. PACLITAXEL [Concomitant]
     Dosage: OVER 3 HOURS
     Route: 042
  3. GRANISETRON [Concomitant]
     Indication: NAUSEA
     Dosage: EVERY 12 HOURS AT HOME.
     Route: 048
  4. GRANISETRON [Concomitant]
     Indication: PREMEDICATION
     Dosage: 30 MINUTES PRIOR TO CHEMOTHERAPY.
     Route: 042
  5. DEXAMETHASONE [Concomitant]
     Indication: PREMEDICATION
     Dosage: OVER 15 MINUTES, 30 MINUTES PRIOR TO CHEMOTHERAPY.
     Route: 042
  6. DIPHENHYDRAMINE HCL [Concomitant]
     Indication: PREMEDICATION
     Dosage: OVER 15 MINUTES, 30 MINUTES PRIOR TO CHEMOTHERAPY.
     Route: 042
  7. FAMOTIDINE [Concomitant]
     Indication: PREMEDICATION
     Dosage: OVER 15 MINUTES, 30 MINUTES PRIOR TO CHEMOTHERAPY.
     Route: 042
  8. APREPITANT [Concomitant]
     Indication: PREMEDICATION
     Dosage: 30 TO 60 MINUTES PRIOR TO CHEMOTHERAPY.

REACTIONS (3)
  - NAUSEA [None]
  - RASH ERYTHEMATOUS [None]
  - URTICARIA [None]
